FAERS Safety Report 6893992-2 (Version None)
Quarter: 2010Q3

REPORT INFORMATION
  Report Type: 
  Country: None (occurrence: None)
  Receive Date: 20100802
  Receipt Date: 20100722
  Transmission Date: 20110219
  Serious: Yes (Death)
  Sender: FDA-Public Use
  Company Number: US-RANBAXY-2010US-36125

PATIENT

DRUGS (1)
  1. CALAN SR (VERAPAMIL) [Suspect]
     Indication: ILL-DEFINED DISORDER
     Dosage: UNK, UNK
     Route: 048

REACTIONS (1)
  - MEDICATION ERROR [None]
